FAERS Safety Report 5621860-2 (Version None)
Quarter: 2008Q1

REPORT INFORMATION
  Report Type: 
  Country: None (occurrence: None)
  Receive Date: 20080211
  Receipt Date: 20071119
  Transmission Date: 20080703
  Serious: Yes (Other)
  Sender: FDA-Public Use
  Company Number: US-BRISTOL-MYERS SQUIBB COMPANY-13987300

PATIENT
  Age: 42 Year
  Sex: Female

DRUGS (5)
  1. IXEMPRA [Suspect]
     Indication: BREAST CANCER METASTATIC
     Dosage: IXEMPRA RECEIVED ON 15-NOV-2007 AND ON 19-NOV-2007.
     Dates: start: 20071115, end: 20071115
  2. PROTONIX [Concomitant]
  3. TESSALON [Concomitant]
  4. MS CONTIN [Concomitant]
  5. TUSSIONEX [Concomitant]

REACTIONS (4)
  - HEADACHE [None]
  - MALIGNANT NEOPLASM PROGRESSION [None]
  - NAUSEA [None]
  - VOMITING [None]
